FAERS Safety Report 9415012 (Version 1)
Quarter: 2013Q3

REPORT INFORMATION
  Report Type: Spontaneous
  Country: DE (occurrence: DE)
  Receive Date: 20130723
  Receipt Date: 20130723
  Transmission Date: 20140515
  Serious: Yes (Other)
  Sender: FDA-Public Use
  Company Number: DE-JNJFOC-20130709618

PATIENT
  Age: 58 Year
  Sex: Female
  Weight: 61.22 kg

DRUGS (7)
  1. XARELTO [Suspect]
     Indication: THROMBOSIS PROPHYLAXIS
     Route: 048
  2. XARELTO [Suspect]
     Indication: THROMBOSIS PROPHYLAXIS
     Route: 048
  3. XARELTO [Suspect]
     Indication: CEREBRAL VENOUS THROMBOSIS
     Route: 048
  4. XARELTO [Suspect]
     Indication: CEREBRAL VENOUS THROMBOSIS
     Route: 048
  5. EUTHYROX [Concomitant]
     Indication: HYPOTHYROIDISM
     Route: 065
  6. BISOPROLOL [Concomitant]
     Indication: TRANSIENT ISCHAEMIC ATTACK
     Route: 065
  7. BISOPROLOL [Concomitant]
     Indication: HYPERTENSION
     Route: 065

REACTIONS (4)
  - Hypertension [Recovered/Resolved]
  - Headache [Recovered/Resolved]
  - Fatigue [Recovered/Resolved]
  - Off label use [Unknown]
